FAERS Safety Report 8333048-5 (Version None)
Quarter: 2012Q2

REPORT INFORMATION
  Report Type: 
  Country: None (occurrence: None)
  Receive Date: 20120503
  Receipt Date: 20120427
  Transmission Date: 20120825
  Serious: Yes (Hospitalization)
  Sender: FDA-Public Use
  Company Number: PHHY2012AR036233

PATIENT
  Sex: Female

DRUGS (1)
  1. ONBREZ [Suspect]
     Dosage: UNK
     Dates: start: 20110907

REACTIONS (1)
  - DISCOMFORT [None]
